FAERS Safety Report 7865386-4 (Version None)
Quarter: 2011Q4

REPORT INFORMATION
  Report Type: 
  Country: None (occurrence: None)
  Receive Date: 20111028
  Receipt Date: 20101210
  Transmission Date: 20120403
  Serious: No
  Sender: FDA-Public Use
  Company Number: US-GLAXOSMITHKLINE-A0899305A

PATIENT
  Age: 67 Year
  Sex: Female

DRUGS (2)
  1. ADVAIR DISKUS 100/50 [Suspect]
     Indication: ASTHMA
     Dosage: 1PUFF TWICE PER DAY
     Route: 055
     Dates: start: 20101201
  2. VERAPAMIL [Concomitant]

REACTIONS (5)
  - FEELING ABNORMAL [None]
  - TREMOR [None]
  - DRY THROAT [None]
  - NASAL DRYNESS [None]
  - TINNITUS [None]
